FAERS Safety Report 18334099 (Version 1)
Quarter: 2020Q4

REPORT INFORMATION
  Report Type: Spontaneous
  Country: GB (occurrence: GB)
  Receive Date: 20201001
  Receipt Date: 20201001
  Transmission Date: 20210113
  Serious: Yes (Death)
  Sender: FDA-Public Use
  Company Number: GB-AMNEAL PHARMACEUTICALS-2020-AMRX-03012

PATIENT
  Sex: Female

DRUGS (2)
  1. FULVESTRANT. [Suspect]
     Active Substance: FULVESTRANT
     Indication: HORMONE RECEPTOR POSITIVE BREAST CANCER
     Dosage: 500 MG FULVESTRANT AT STANDARD DOSING
     Route: 030
  2. CAPIVASERTIB. [Suspect]
     Active Substance: CAPIVASERTIB
     Indication: HORMONE RECEPTOR POSITIVE BREAST CANCER
     Dosage: 400 MILLIGRAM, 2X/DAY, FOR 4 DAYS ON FOLLOWED BY 3 DAYS OFF CONTINUOUSLY
     Route: 048

REACTIONS (1)
  - Dyspnoea [Fatal]
